FAERS Safety Report 8245953-9 (Version None)
Quarter: 2012Q1

REPORT INFORMATION
  Report Type: 
  Country: None (occurrence: None)
  Receive Date: 20120328
  Receipt Date: 20120328
  Transmission Date: 20120608
  Serious: Yes (Hospitalization)
  Sender: FDA-Public Use
  Company Number: None

PATIENT
  Sex: Male
  Weight: 66.2 kg

DRUGS (9)
  1. CISPLATIN [Suspect]
     Dosage: 291 MG
     Dates: end: 20120305
  2. TAXOL [Suspect]
     Dosage: 582 MG
     Dates: end: 20120305
  3. AMLODIPINE [Concomitant]
  4. TAMSULOSIN HYDROCHLORIDE [Concomitant]
  5. BENAZEPRIL HYDROCHLORIDE [Concomitant]
  6. FENOFIBRATE [Concomitant]
  7. OMEPRAZOLE [Concomitant]
  8. BUPROPION HCL [Concomitant]
  9. CITALOPRAM HYDROBROMIDE [Concomitant]

REACTIONS (2)
  - ASTHENIA [None]
  - BLOOD SODIUM DECREASED [None]
